FAERS Safety Report 13303089 (Version 6)
Quarter: 2019Q2

REPORT INFORMATION
  Report Type: Spontaneous
  Country: US (occurrence: US)
  Receive Date: 20170307
  Receipt Date: 20190528
  Transmission Date: 20190711
  Serious: No
  Sender: FDA-Public Use
  Company Number: US-PFIZER INC-2017100815

PATIENT
  Age: 71 Year
  Sex: Male
  Weight: 72 kg

DRUGS (8)
  1. LYRICA [Suspect]
     Active Substance: PREGABALIN
     Dosage: 450 MG, DAILY (TAKE 2 CAPSULES BY MOUTH TWO TIMES DAILY)
     Route: 048
  2. GABAPENTIN. [Concomitant]
     Active Substance: GABAPENTIN
     Indication: DIABETIC NEUROPATHY
     Dosage: 900 MG, 4X/DAY
     Dates: start: 201611
  3. LYRICA [Suspect]
     Active Substance: PREGABALIN
     Indication: DIABETIC NEUROPATHY
     Dosage: 30 MG, 2X/DAY, (1 IN THE MORNING AND 1 IN THE EVENING)
     Dates: start: 20170222
  4. LYRICA [Suspect]
     Active Substance: PREGABALIN
     Dosage: 450 MG, 2X/DAY [225 MG CAPSULE, TAKE 2 CAPSULES (450 MG) TWO TIMES DAILY]
     Route: 048
     Dates: start: 20170731
  5. METFORMIN [Concomitant]
     Active Substance: METFORMIN HYDROCHLORIDE
     Indication: DIABETES MELLITUS
     Dosage: UNK
     Dates: start: 2016
  6. LYRICA [Suspect]
     Active Substance: PREGABALIN
     Dosage: 450 MG, 2X/DAY [225 MG CAPSULE, TAKE 2 CAPSULES (450 MG) TWO TIMES DAILY]
     Route: 048
     Dates: start: 20171018
  7. LYRICA [Suspect]
     Active Substance: PREGABALIN
     Dosage: 900 MG, DAILY
     Dates: start: 201807
  8. GABAPENTIN. [Concomitant]
     Active Substance: GABAPENTIN
     Dosage: 6600 MG, DAILY, 7 PILLS IN THE MORNING, 7 PILLS IN THE EVENING, 4 PILLS AT LUNCH,4 PILLS AT MIDNIGHT

REACTIONS (3)
  - Therapeutic product effect incomplete [Unknown]
  - Gait disturbance [Unknown]
  - Prescribed overdose [Unknown]
